FAERS Safety Report 4318885-6 (Version None)
Quarter: 2004Q1

REPORT INFORMATION
  Report Type: 
  Country: None (occurrence: None)
  Receive Date: 20040315
  Receipt Date: 20040302
  Transmission Date: 20041129
  Serious: Yes (Other)
  Sender: FDA-Public Use
  Company Number: A022951

PATIENT
  Age: 77 Year
  Sex: Male

DRUGS (12)
  1. MINIZIDE [Suspect]
     Indication: ILL-DEFINED DISORDER
     Dosage: 2 MG (DAILY), ORAL
     Route: 048
  2. LIPITOR [Suspect]
     Indication: HYPERLIPIDAEMIA
     Dosage: 20 MG (DAILY), ORAL
     Route: 048
     Dates: start: 20000509, end: 20000808
  3. ARTHROTEC [Suspect]
     Indication: ARTHRITIS
     Dosage: 75 MG (DAILY)
     Dates: start: 19990401
  4. METFORMIN HCL [Concomitant]
  5. TAMSULOSIN (TAMSULOSIN) [Concomitant]
  6. LEVOTHYROXINE SODIUM [Concomitant]
  7. ALLOPURINOL [Concomitant]
  8. GLYBURIDE [Concomitant]
  9. ACETYLSALICYLIC ACID SRT [Concomitant]
  10. MORNIFLUMATE (MORNIFLUMATE) [Concomitant]
  11. GKLIBENCKLAMIDE (GLIBENCLAMIDE) [Concomitant]
  12. ROFECOXIB [Concomitant]

REACTIONS (5)
  - DYSPHAGIA [None]
  - MOUTH HAEMORRHAGE [None]
  - MOUTH ULCERATION [None]
  - OEDEMA MOUTH [None]
  - SWELLING FACE [None]
